FAERS Safety Report 8437699-9 (Version None)
Quarter: 2012Q2

REPORT INFORMATION
  Report Type: 
  Country: None (occurrence: None)
  Receive Date: 20120323
  Receipt Date: 20110616
  Transmission Date: 20120825
  Serious: Yes (Other)
  Sender: FDA-Public Use
  Company Number: 163-21880-11062498

PATIENT
  Age: 70 Year
  Sex: Female
  Weight: 51.7101 kg

DRUGS (2)
  1. REVLIMID [Suspect]
     Indication: MULTIPLE MYELOMA
     Dosage: 10  MG, 1 IN 1 D, PO, 5 MG, M-F, PO
     Route: 048
     Dates: start: 20100901, end: 20110101
  2. REVLIMID [Suspect]
     Indication: MULTIPLE MYELOMA
     Dosage: 10  MG, 1 IN 1 D, PO, 5 MG, M-F, PO
     Route: 048
     Dates: start: 20110601

REACTIONS (1)
  - BONE MARROW FAILURE [None]
